FAERS Safety Report 8717695 (Version 3)
Quarter: 2013Q4

REPORT INFORMATION
  Report Type: Spontaneous
  Country: FR (occurrence: FR)
  Receive Date: 20120810
  Receipt Date: 20131105
  Transmission Date: 20140711
  Serious: Yes (Hospitalization)
  Sender: FDA-Public Use
  Company Number: FR-MERCK-1208FRA003691

PATIENT
  Age: 73 Year
  Sex: Male

DRUGS (15)
  1. TIENAM 500MG/500MG, POUDRE POUR PERFUSION [Suspect]
     Dosage: 500 MG, TID
     Route: 042
     Dates: start: 20120704, end: 20120707
  2. PLAVIX [Suspect]
     Dosage: 75 MG, QD
     Dates: start: 20120707, end: 20120723
  3. DOLIPRANE [Suspect]
     Dosage: 1 G, QD
     Route: 048
     Dates: start: 20120711, end: 20120717
  4. CIFLOX (CIPROFLOXACIN HYDROCHLORIDE) [Suspect]
     Dosage: 500 MG, BID
     Route: 042
     Dates: start: 20120713, end: 20120723
  5. TAZOCILLINE [Suspect]
     Dosage: 4 G, TID
     Route: 042
     Dates: start: 20120709, end: 20120713
  6. OFLOCET (OFLOXACIN) [Suspect]
     Dosage: 200 MG, BID
     Dates: start: 20120709, end: 20120711
  7. TENORMINE [Suspect]
     Dosage: 100 MG, QD
     Route: 048
     Dates: start: 20120707, end: 20120711
  8. INIPOMP [Suspect]
     Dosage: 40 MG, UNK
     Route: 048
     Dates: start: 20120707, end: 20120711
  9. ACUPAN [Suspect]
     Dosage: UNK
     Route: 042
     Dates: start: 20120714, end: 20120724
  10. LASILIX [Concomitant]
     Route: 048
  11. JOSIR [Concomitant]
  12. CORDARONE [Concomitant]
     Route: 048
  13. LOVENOX [Concomitant]
     Route: 058
  14. NICOBION [Concomitant]
     Route: 048
  15. NOVORAPID [Concomitant]
     Dosage: UNK
     Route: 058
     Dates: start: 20120711

REACTIONS (1)
  - Hypersensitivity vasculitis [Recovered/Resolved]
